FAERS Safety Report 20199862 (Version 2)
Quarter: 2021Q4

REPORT INFORMATION
  Report Type: Report from Study
  Country: MX (occurrence: MX)
  Receive Date: 20211217
  Receipt Date: 20211220
  Transmission Date: 20220303
  Serious: Yes (Other)
  Sender: FDA-Public Use
  Company Number: MX-NOVARTISPH-NVSC2019MX073847

PATIENT
  Sex: Female
  Weight: 53 kg

DRUGS (17)
  1. ENTRESTO [Suspect]
     Active Substance: SACUBITRIL\VALSARTAN
     Indication: Cardiac disorder
     Dosage: 0.5 DF, BID (49 MG SACUBITRIL AND 51 MG VALSARTAN) (MORNING AND NIGHT)
     Route: 048
  2. ENTRESTO [Suspect]
     Active Substance: SACUBITRIL\VALSARTAN
     Dosage: 1 DF, BID (100 MG)
     Route: 048
  3. ENTRESTO [Suspect]
     Active Substance: SACUBITRIL\VALSARTAN
     Dosage: 0.5 DOSAGE FORM, BID (100 MG)
     Route: 048
     Dates: start: 2019
  4. ENTRESTO [Suspect]
     Active Substance: SACUBITRIL\VALSARTAN
     Dosage: 100 MG, BID
     Route: 048
  5. DIOVAN [Suspect]
     Active Substance: VALSARTAN
     Indication: Product used for unknown indication
     Dosage: 1 DOSAGE FORM, QD
     Route: 048
  6. LASIX [Concomitant]
     Active Substance: FUROSEMIDE
     Indication: Thrombosis
     Dosage: 1.5 DF, QD (10 YEARS AGO) (1 TABLET IN THE MORNING AND ? TABLET AT THE MEAL)
     Route: 048
  7. LASIX [Concomitant]
     Active Substance: FUROSEMIDE
     Indication: Cardiac disorder
  8. SPIRONOLACTONE [Concomitant]
     Active Substance: SPIRONOLACTONE
     Indication: Thrombosis
     Dosage: 2 DF, QD (10 YEARS AGO)
     Route: 048
  9. SPIRONOLACTONE [Concomitant]
     Active Substance: SPIRONOLACTONE
     Indication: Cardiac disorder
  10. CONCORD 693 [Concomitant]
     Indication: Thrombosis
     Dosage: 1 DF, BID (10 YEARS AGO)
     Route: 048
  11. CONCORD 693 [Concomitant]
     Indication: Cardiac disorder
  12. VENALOT DEPOT [Concomitant]
     Indication: Thrombosis
     Dosage: 1 DF, BID (10 YEARS AGO)
     Route: 048
  13. VENALOT DEPOT [Concomitant]
     Indication: Cardiac disorder
  14. ZYLOPRIM [Concomitant]
     Active Substance: ALLOPURINOL
     Indication: Thrombosis
     Dosage: 1 DF, QD (10 YEARS AGO)
     Route: 048
  15. ZYLOPRIM [Concomitant]
     Active Substance: ALLOPURINOL
     Indication: Cardiac disorder
  16. BEDOYECTA [Concomitant]
     Indication: Thrombosis
     Dosage: 1 DF, QD (10 YEARS AGO)
     Route: 048
  17. BEDOYECTA [Concomitant]
     Indication: Cardiac disorder

REACTIONS (7)
  - Cardiac failure [Unknown]
  - Gait disturbance [Unknown]
  - Kyphosis [Unknown]
  - Back pain [Unknown]
  - Fatigue [Unknown]
  - Wrong technique in product usage process [Unknown]
  - Product use in unapproved indication [Unknown]

NARRATIVE: CASE EVENT DATE: 20190101
